FAERS Safety Report 7789581-8 (Version None)
Quarter: 2011Q3

REPORT INFORMATION
  Report Type: 
  Country: None (occurrence: None)
  Receive Date: 20110930
  Receipt Date: 20110921
  Transmission Date: 20111222
  Serious: Yes (Hospitalization)
  Sender: FDA-Public Use
  Company Number: CA-JNJFOC-20110910005

PATIENT
  Sex: Female
  Weight: 73 kg

DRUGS (9)
  1. ESCITALOPRAM [Concomitant]
  2. REMICADE [Suspect]
     Indication: CROHN'S DISEASE
     Route: 042
  3. COLESTID [Concomitant]
  4. TYLENOL W/ CODEINE NO. 4 [Concomitant]
  5. IRON [Concomitant]
     Route: 042
  6. CLONAZEPAM [Concomitant]
  7. IMURAN [Concomitant]
  8. VITAMIN B-12 [Concomitant]
     Route: 050
  9. WELLBUTRIN [Concomitant]

REACTIONS (3)
  - VOMITING [None]
  - LOSS OF CONSCIOUSNESS [None]
  - PNEUMONIA ASPIRATION [None]
